FAERS Safety Report 11881943 (Version 3)
Quarter: 2016Q2

REPORT INFORMATION
  Report Type: Spontaneous
  Country: PT (occurrence: PT)
  Receive Date: 20151231
  Receipt Date: 20160606
  Transmission Date: 20160815
  Serious: Yes (Other)
  Sender: FDA-Public Use
  Company Number: PT-PFIZER INC-2015464540

PATIENT
  Age: 53 Year
  Sex: Female

DRUGS (6)
  1. SOCIAN [Interacting]
     Active Substance: AMISULPRIDE
     Indication: NEGATIVE THOUGHTS
     Dosage: 50 MG, AS NEEDED
     Route: 048
     Dates: start: 20091214
  2. ALDACTONE [Suspect]
     Active Substance: SPIRONOLACTONE
     Indication: ALOPECIA
     Route: 048
  3. FAMPYRA [Interacting]
     Active Substance: DALFAMPRIDINE
     Indication: GAIT DISTURBANCE
     Dosage: 10 MG, 2X/DAY (12/12H)
     Route: 048
     Dates: start: 20151117, end: 20151215
  4. SOCIAN [Interacting]
     Active Substance: AMISULPRIDE
     Indication: ANXIETY
  5. VITERNUM [Concomitant]
     Route: 048
  6. REBIF [Concomitant]
     Active Substance: INTERFERON BETA-1A
     Indication: MULTIPLE SCLEROSIS
     Dosage: 1 DF, ALTERNATE DAY
     Route: 058
     Dates: start: 20090206

REACTIONS (5)
  - Product use issue [Unknown]
  - Balance disorder [Unknown]
  - Condition aggravated [Unknown]
  - Dizziness [Unknown]
  - Drug interaction [Unknown]

NARRATIVE: CASE EVENT DATE: 20151117
